FAERS Safety Report 6978812-X (Version None)
Quarter: 2010Q3

REPORT INFORMATION
  Report Type: 
  Country: None (occurrence: None)
  Receive Date: 20100913
  Receipt Date: 20100909
  Transmission Date: 20110219
  Serious: Yes (Death, Other)
  Sender: FDA-Public Use
  Company Number: US-SHIRE-ALL1-2010-04743

PATIENT
  Age: 68 Year
  Sex: Male

DRUGS (2)
  1. FOSRENOL [Suspect]
     Indication: HYPERPHOSPHATAEMIA
     Dosage: 500 MG, OTHER (WITH MEALS)
     Route: 048
  2. PHOSLO [Concomitant]
     Indication: PRODUCT USED FOR UNKNOWN INDICATION
     Dosage: 2031 MG, OTHER (THREE 677 MG CAPSULES WITH MEALS)
     Route: 048

REACTIONS (3)
  - ABDOMINAL INFECTION [None]
  - DEATH [None]
  - GALLBLADDER DISORDER [None]
